FAERS Safety Report 9853507 (Version 2)
Quarter: 2014Q1

REPORT INFORMATION
  Report Type: Spontaneous
  Country: US (occurrence: US)
  Receive Date: 20140129
  Receipt Date: 20140214
  Transmission Date: 20141002
  Serious: Yes (Hospitalization, Other)
  Sender: FDA-Public Use
  Company Number: US-BAYER-2014-015425

PATIENT
  Age: 62 Year
  Sex: Female
  Weight: 49.89 kg

DRUGS (1)
  1. BAYER GENUINE ASPIRIN ORIGINAL STRENGTH [Suspect]
     Indication: ISCHAEMIC HEART DISEASE PROPHYLAXIS
     Dosage: 1 DF, QD
     Route: 048
     Dates: start: 1989, end: 1989

REACTIONS (3)
  - Chest pain [Recovered/Resolved]
  - Cardiac failure [Recovered/Resolved]
  - Drug hypersensitivity [None]
